FAERS Safety Report 8261057-3 (Version None)
Quarter: 2012Q2

REPORT INFORMATION
  Report Type: 
  Country: None (occurrence: None)
  Receive Date: 20120405
  Receipt Date: 20120327
  Transmission Date: 20120825
  Serious: Yes (Disabling, Other)
  Sender: FDA-Public Use
  Company Number: PHEH2012US001979

PATIENT
  Sex: Female
  Weight: 62.585 kg

DRUGS (13)
  1. ASPIRIN [Concomitant]
     Indication: PROPHYLAXIS
     Dosage: 81 MG, DAILY
     Route: 048
  2. ZOMETA [Suspect]
     Indication: METASTASES TO BONE
     Dosage: 4 MG, QMO
     Route: 042
     Dates: start: 20090207, end: 20111108
  3. VICODIN [Concomitant]
     Indication: ARTHRALGIA
     Route: 048
  4. ARIMIDEX [Concomitant]
     Dates: start: 20080109
  5. SIMVASTATIN [Concomitant]
     Indication: HYPERLIPIDAEMIA
     Dosage: 10 MG, DAILY
     Route: 048
  6. ATACAND [Concomitant]
     Indication: HYPERTENSION
     Dosage: 16 MG, DAILY
     Route: 048
  7. TAXOTERE [Concomitant]
     Dates: start: 20070904
  8. FLEXERIL [Concomitant]
     Indication: ARTHRALGIA
  9. SYNTHROID [Concomitant]
     Indication: HYPERTHYROIDISM
     Dosage: 0.192 MG, DAILY
     Route: 048
  10. ZOCOR [Concomitant]
     Indication: BLOOD CHOLESTEROL INCREASED
     Dosage: 10 MG, DAILY
     Route: 048
  11. AROMASIN [Concomitant]
  12. CYTOXAN [Concomitant]
  13. LACTOBACILLUS [Concomitant]
     Dosage: 4 MG, MG

REACTIONS (12)
  - MUSCULOSKELETAL PAIN [None]
  - ANAEMIA [None]
  - RIB FRACTURE [None]
  - FRACTURE [None]
  - ARTHRALGIA [None]
  - INSOMNIA [None]
  - NODULE [None]
  - MENISCUS LESION [None]
  - BLOOD PRESSURE INCREASED [None]
  - SKIN WARM [None]
  - DRY SKIN [None]
  - CONSTIPATION [None]
